FAERS Safety Report 7898028-2 (Version None)
Quarter: 2011Q4

REPORT INFORMATION
  Report Type: 
  Country: None (occurrence: None)
  Receive Date: 20111107
  Receipt Date: 20111107
  Transmission Date: 20120403
  Serious: Yes (Other)
  Sender: FDA-Public Use
  Company Number: None

PATIENT
  Age: 52 Year
  Sex: Female
  Weight: 65.77 kg

DRUGS (2)
  1. CIPRO [Suspect]
     Indication: INFECTION
     Dosage: 1 TABLET MY MOUTH
     Route: 048
     Dates: start: 20110908, end: 20110910
  2. CIPRO [Suspect]
     Indication: NO THERAPEUTIC RESPONSE
     Dosage: 1 TABLET MY MOUTH
     Route: 048
     Dates: start: 20110908, end: 20110910

REACTIONS (17)
  - ABASIA [None]
  - NEURALGIA [None]
  - TENDON DISORDER [None]
  - WEIGHT BEARING DIFFICULTY [None]
  - HEADACHE [None]
  - PAIN IN EXTREMITY [None]
  - PARAESTHESIA [None]
  - SWELLING [None]
  - NECK PAIN [None]
  - ASTHENIA [None]
  - ARTHRALGIA [None]
  - OEDEMA PERIPHERAL [None]
  - MUSCULAR WEAKNESS [None]
  - HYPOAESTHESIA [None]
  - PAIN [None]
  - JOINT SWELLING [None]
  - DRUG INEFFECTIVE [None]
